FAERS Safety Report 12144074 (Version 1)
Quarter: 2016Q1

REPORT INFORMATION
  Report Type: Spontaneous
  Country: US (occurrence: US)
  Receive Date: 20160304
  Receipt Date: 20160304
  Transmission Date: 20160526
  Serious: Yes (Other)
  Sender: FDA-Public Use
  Company Number: US-BEH-2016059324

PATIENT
  Sex: Female
  Weight: 85 kg

DRUGS (20)
  1. ALLOPURINOL. [Concomitant]
     Active Substance: ALLOPURINOL
  2. OMEPRAZOLE. [Concomitant]
     Active Substance: OMEPRAZOLE
  3. VITAMIN D [Concomitant]
     Active Substance: CHOLECALCIFEROL
  4. LOPERAMIDE [Concomitant]
     Active Substance: LOPERAMIDE
  5. KEFLEX [Concomitant]
     Active Substance: CEPHALEXIN
  6. EPIPEN [Concomitant]
     Active Substance: EPINEPHRINE
  7. SOMA [Concomitant]
     Active Substance: CARISOPRODOL
  8. ACETAMINOPHEN. [Concomitant]
     Active Substance: ACETAMINOPHEN
  9. LIDOCAINE/PRILOCAINE [Concomitant]
  10. HIZENTRA [Suspect]
     Active Substance: HUMAN IMMUNOGLOBULIN G
     Route: 058
     Dates: start: 20110811
  11. CALCIUM [Concomitant]
     Active Substance: CALCIUM
  12. ASPIRIN. [Concomitant]
     Active Substance: ASPIRIN
  13. LEXAPRO [Concomitant]
     Active Substance: ESCITALOPRAM OXALATE
  14. LIPITOR [Concomitant]
     Active Substance: ATORVASTATIN CALCIUM
  15. ALVESCO [Concomitant]
     Active Substance: CICLESONIDE
  16. HIZENTRA [Suspect]
     Active Substance: HUMAN IMMUNOGLOBULIN G
     Indication: IMMUNODEFICIENCY COMMON VARIABLE
     Route: 058
     Dates: start: 20110811
  17. HYDROCHLORTHIAZIDE [Concomitant]
     Active Substance: HYDROCHLOROTHIAZIDE
  18. DOXEPIN [Concomitant]
     Active Substance: DOXEPIN
  19. LEVOTHYROXINE. [Concomitant]
     Active Substance: LEVOTHYROXINE
  20. AMBIEN [Concomitant]
     Active Substance: ZOLPIDEM TARTRATE

REACTIONS (1)
  - Breast cancer [Unknown]
